FAERS Safety Report 8710394 (Version 2)
Quarter: 2013Q4

REPORT INFORMATION
  Report Type: Report from Study
  Country: US (occurrence: US)
  Receive Date: 20120807
  Receipt Date: 20131101
  Transmission Date: 20140711
  Serious: No
  Sender: FDA-Public Use
  Company Number: US-009507513-1207USA009208

PATIENT
  Sex: Male

DRUGS (5)
  1. VICTRELIS [Suspect]
     Indication: HEPATITIS C
     Route: 048
  2. PEGASYS [Suspect]
  3. RIBAPAK [Suspect]
  4. CELEXA [Concomitant]
  5. IBUPROFEN [Concomitant]

REACTIONS (6)
  - Intraocular pressure increased [Unknown]
  - Muscle atrophy [Unknown]
  - Loss of libido [Unknown]
  - Headache [Unknown]
  - Weight decreased [Unknown]
  - Anaemia [Unknown]
